FAERS Safety Report 8131059-6 (Version None)
Quarter: 2012Q1

REPORT INFORMATION
  Report Type: 
  Country: None (occurrence: None)
  Receive Date: 20120209
  Receipt Date: 20120209
  Transmission Date: 20120608
  Serious: No
  Sender: FDA-Public Use
  Company Number: None

PATIENT
  Sex: Female

DRUGS (1)
  1. CENTAMIN LIQUID SILARX [Suspect]
     Dosage: 5ML PO
     Route: 048
     Dates: start: 20120201

REACTIONS (1)
  - DYSPEPSIA [None]
